FAERS Safety Report 6790282-3 (Version None)
Quarter: 2010Q2

REPORT INFORMATION
  Report Type: 
  Country: None (occurrence: None)
  Receive Date: 20100624
  Receipt Date: 20100616
  Transmission Date: 20101027
  Serious: Yes (Other)
  Sender: FDA-Public Use
  Company Number: ES-BRISTOL-MYERS SQUIBB COMPANY-15112014

PATIENT
  Age: 72 Year
  Sex: Male

DRUGS (6)
  1. CARBIDOPA + LEVODOPA [Suspect]
     Indication: PARKINSON'S DISEASE
     Dosage: 1DF=12.5-50MG(16OCT09-22OCT(7D;23OCT-30OCTBID;12.5-50MG:31OCT-06NOV09;07NOV-09FEB2010;10FEB2010-UNK
     Route: 048
     Dates: start: 20091016
  2. MIRAPEX [Suspect]
     Dosage: 24FEB2010-15MAR2010:(20D);16MAR2010-04APR2010(20D)BID;05APR2010-(TID)
     Route: 048
     Dates: start: 20100224
  3. MAGNESIUM [Concomitant]
     Dates: start: 20091230
  4. PYGEUM [Concomitant]
     Dates: start: 20091230
  5. SAW PALMETTO [Concomitant]
     Dates: start: 20091230
  6. ZINC [Concomitant]
     Dates: start: 20091230

REACTIONS (2)
  - PROSTATE CANCER RECURRENT [None]
  - PROSTATIC SPECIFIC ANTIGEN INCREASED [None]
